FAERS Safety Report 25211424 (Version 1)
Quarter: 2025Q2

REPORT INFORMATION
  Report Type: Spontaneous
  Country: US (occurrence: US)
  Receive Date: 20250417
  Receipt Date: 20250417
  Transmission Date: 20250716
  Serious: Yes (Hospitalization)
  Sender: CHIESI
  Company Number: US-CHIESI-2025CHF02502

PATIENT
  Age: 33 Year
  Sex: Male
  Weight: 49 kg

DRUGS (1)
  1. FERRIPROX [Suspect]
     Active Substance: DEFERIPRONE
     Indication: Sickle cell disease
     Dosage: 3000 MILLIGRAM, BID
     Route: 048
     Dates: start: 20250221

REACTIONS (4)
  - Ill-defined disorder [Not Recovered/Not Resolved]
  - Hepatic enzyme increased [Not Recovered/Not Resolved]
  - Prescribed overdose [Unknown]
  - Off label use [Unknown]

NARRATIVE: CASE EVENT DATE: 20250221
